FAERS Safety Report 7389349 (Version 3)
Quarter: 2014Q1

REPORT INFORMATION
  Report Type: Spontaneous
  Country: US (occurrence: US)
  Receive Date: 20100517
  Receipt Date: 20140106
  Transmission Date: 20141002
  Serious: Yes (Other)
  Sender: FDA-Public Use
  Company Number: US-JNJFOC-20100503116

PATIENT
  Age: 50 Year
  Sex: Male
  Weight: 74.84 kg

DRUGS (7)
  1. INTELENCE [Suspect]
     Indication: HIV INFECTION
     Route: 048
     Dates: start: 2009
  2. SINGULAIR [Concomitant]
  3. FLOVENT HFA [Concomitant]
  4. ISENTRESS [Concomitant]
     Indication: HIV INFECTION
     Route: 048
  5. TRUVADA [Concomitant]
     Indication: HIV INFECTION
     Route: 048
  6. TRAZODONE [Concomitant]
  7. DIOVAN HCT [Concomitant]

REACTIONS (3)
  - Choking [Recovered/Resolved]
  - Dysphagia [Not Recovered/Not Resolved]
  - Product quality issue [Unknown]
